FAERS Safety Report 8413273-5 (Version None)
Quarter: 2012Q2

REPORT INFORMATION
  Report Type: 
  Country: None (occurrence: None)
  Receive Date: 20120605
  Receipt Date: 20120602
  Transmission Date: 20120825
  Serious: Yes (Death)
  Sender: FDA-Public Use
  Company Number: PHHY2012CA032216

PATIENT
  Sex: Female

DRUGS (8)
  1. FOSAMAX [Concomitant]
  2. CLOZARIL [Suspect]
     Route: 048
     Dates: start: 20041026
  3. VITAMIN B-12 [Concomitant]
  4. PANTOPRAZOLE SODIUM [Concomitant]
  5. SENOKOT [Concomitant]
  6. CARBOCAL D [Concomitant]
  7. DILANTIN [Concomitant]
  8. LOPRESSOR [Concomitant]

REACTIONS (2)
  - CARDIAC DISORDER [None]
  - CIRCULATORY COLLAPSE [None]
